FAERS Safety Report 8130658-5 (Version None)
Quarter: 2012Q1

REPORT INFORMATION
  Report Type: 
  Country: None (occurrence: None)
  Receive Date: 20120213
  Receipt Date: 20120201
  Transmission Date: 20120608
  Serious: Yes (Other)
  Sender: FDA-Public Use
  Company Number: US-BIOGENIDEC-2012BI003958

PATIENT
  Age: 51 Year
  Sex: Female

DRUGS (2)
  1. AVONEX [Suspect]
     Route: 030
  2. AVONEX [Suspect]
     Indication: MULTIPLE SCLEROSIS
     Route: 030
     Dates: start: 20010529

REACTIONS (14)
  - ROAD TRAFFIC ACCIDENT [None]
  - BONE SWELLING [None]
  - MOBILITY DECREASED [None]
  - CONTUSION [None]
  - MENTAL IMPAIRMENT [None]
  - AMNESIA [None]
  - HEAT STROKE [None]
  - GAIT DISTURBANCE [None]
  - ABNORMAL LOSS OF WEIGHT [None]
  - DECREASED APPETITE [None]
  - MUSCLE SPASMS [None]
  - CARPAL TUNNEL SYNDROME [None]
  - FALL [None]
  - FAECAL INCONTINENCE [None]
